FAERS Safety Report 7380551-0 (Version None)
Quarter: 2011Q1

REPORT INFORMATION
  Report Type: 
  Country: None (occurrence: None)
  Receive Date: 20110321
  Receipt Date: 20110305
  Transmission Date: 20110831
  Serious: Yes (Other)
  Sender: FDA-Public Use
  Company Number: 2011P1004792

PATIENT
  Age: 70 Year
  Sex: Female
  Weight: 59.8748 kg

DRUGS (5)
  1. GABAPENTIN [Concomitant]
  2. FENTANYL PATCH 50 MCG/HR (NO PREF. NAME) [Suspect]
     Indication: HIP ARTHROPLASTY
     Dosage: 1 PATCH; Q72H; TDER
     Route: 062
     Dates: start: 20110301
  3. ASPIRIN [Concomitant]
  4. PLAVIX [Concomitant]
  5. LORTAB [Concomitant]

REACTIONS (6)
  - SOMNOLENCE [None]
  - HEAD INJURY [None]
  - FALL [None]
  - JOINT INJURY [None]
  - LACERATION [None]
  - APPLICATION SITE PRURITUS [None]
